FAERS Safety Report 11981597 (Version 4)
Quarter: 2016Q2

REPORT INFORMATION
  Report Type: Spontaneous
  Country: US (occurrence: US)
  Receive Date: 20160131
  Receipt Date: 20160415
  Transmission Date: 20160815
  Serious: No
  Sender: FDA-Public Use
  Company Number: US-TEVA-629451USA

PATIENT
  Sex: Male

DRUGS (1)
  1. PROAIR HFA [Suspect]
     Active Substance: ALBUTEROL SULFATE
     Indication: ASTHMA
     Route: 055

REACTIONS (6)
  - Drug effect decreased [Unknown]
  - Allergy to chemicals [Unknown]
  - Drug ineffective [Unknown]
  - Device malfunction [Unknown]
  - Respiratory tract irritation [Unknown]
  - Device occlusion [Unknown]
